FAERS Safety Report 18528568 (Version 2)
Quarter: 2021Q3

REPORT INFORMATION
  Report Type: Spontaneous
  Country: IN (occurrence: IN)
  Receive Date: 20201120
  Receipt Date: 20210921
  Transmission Date: 20211014
  Serious: Yes (Death)
  Sender: FDA-Public Use
  Company Number: IN-PFIZER INC-2020372983

PATIENT
  Age: 70 Year
  Sex: Female

DRUGS (1)
  1. CRIZALK [Suspect]
     Active Substance: CRIZOTINIB
     Indication: NON-SMALL CELL LUNG CANCER
     Dosage: 250 MG, 2X/DAY
     Route: 048
     Dates: start: 20200826, end: 20201025

REACTIONS (1)
  - Death [Fatal]

NARRATIVE: CASE EVENT DATE: 20201025
